FAERS Safety Report 5907902-5 (Version None)
Quarter: 2008Q4

REPORT INFORMATION
  Report Type: 
  Country: None (occurrence: None)
  Receive Date: 20081003
  Receipt Date: 20080922
  Transmission Date: 20090506
  Serious: Yes (Other)
  Sender: FDA-Public Use
  Company Number: US-ELI_LILLY_AND_COMPANY-US200809002468

PATIENT
  Age: 16 Year
  Sex: Female

DRUGS (1)
  1. STRATTERA [Suspect]
     Dosage: 10 MG, UNK
     Dates: start: 20060901

REACTIONS (2)
  - HOMICIDAL IDEATION [None]
  - SOCIAL AVOIDANT BEHAVIOUR [None]
